FAERS Safety Report 11695867 (Version 3)
Quarter: 2016Q1

REPORT INFORMATION
  Report Type: Spontaneous
  Country: FR (occurrence: FR)
  Receive Date: 20151104
  Receipt Date: 20160205
  Transmission Date: 20160525
  Serious: Yes (Hospitalization, Other)
  Sender: FDA-Public Use
  Company Number: FR-009507513-1510FRA002315

PATIENT
  Age: 74 Year
  Sex: Female
  Weight: 61.6 kg

DRUGS (14)
  1. EDUCTYL [Concomitant]
     Active Substance: POTASSIUM BITARTRATE\SODIUM BICARBONATE
     Dosage: 1 DF QD AT 8:00 AM
     Dates: start: 20150903
  2. LANSOPRAZOLE. [Concomitant]
     Active Substance: LANSOPRAZOLE
     Dosage: 1 DF QD AT 7:00 PM
     Route: 048
     Dates: start: 20150903
  3. TAZOCILLINE [Suspect]
     Active Substance: PIPERACILLIN SODIUM\TAZOBACTAM SODIUM
     Dosage: UNK UNK, BID
     Route: 042
     Dates: start: 20150925, end: 20150925
  4. CALCIPARINE [Concomitant]
     Active Substance: HEPARIN CALCIUM
     Dosage: 5000IU, TID
     Route: 058
     Dates: start: 20150903, end: 20150917
  5. PREGABALIN. [Concomitant]
     Active Substance: PREGABALIN
     Dosage: 100 MG, UNKNOWN
     Route: 048
     Dates: start: 20150903, end: 20150920
  6. MOVICOL [Concomitant]
     Active Substance: POLYETHYLENE GLYCOL 3350\POTASSIUM CHLORIDE\SODIUM BICARBONATE\SODIUM CHLORIDE
     Dosage: 2 DF, QAM
     Dates: start: 20150903
  7. OFLOCET (OFLOXACIN HYDROCHLORIDE) [Concomitant]
     Active Substance: OFLOXACIN
     Dosage: 200 MG, BID
     Route: 048
     Dates: start: 20150903, end: 20150923
  8. FUROSEMIDE. [Concomitant]
     Active Substance: FUROSEMIDE
     Dosage: 1 DF, BID
     Route: 048
     Dates: start: 20150925
  9. INVANZ [Suspect]
     Active Substance: ERTAPENEM SODIUM
     Indication: URINARY TRACT INFECTION
     Dosage: 1 G, QD
     Route: 058
     Dates: start: 20150925, end: 20150928
  10. MONICOR [Concomitant]
     Active Substance: ISOSORBIDE MONONITRATE
     Dosage: 2 DF, BID
     Route: 048
     Dates: start: 20150911
  11. DALACINE [Concomitant]
     Active Substance: CLINDAMYCIN HYDROCHLORIDE
     Dosage: 300 MG, 2 TABLET, MORNING, MIDDLY AND EVENING
     Route: 048
     Dates: start: 20150903, end: 20150911
  12. PLAVIX [Concomitant]
     Active Substance: CLOPIDOGREL BISULFATE
     Dosage: 75 MG, QD
     Route: 048
  13. CLOPIDOGREL [Concomitant]
     Active Substance: CLOPIDOGREL BISULFATE
     Dosage: 1 DF QD AT NOON
     Route: 048
     Dates: start: 20150903
  14. NORMACOL (STERCULIA) [Concomitant]
     Dosage: 1 DF QD AT 8:00 AM
     Dates: start: 20150904

REACTIONS (2)
  - Immune thrombocytopenic purpura [Recovered/Resolved]
  - Incorrect route of drug administration [Unknown]

NARRATIVE: CASE EVENT DATE: 20150928
